FAERS Safety Report 9486506 (Version 2)
Quarter: 2014Q1

REPORT INFORMATION
  Report Type: Spontaneous
  Country: US (occurrence: US)
  Receive Date: 20130829
  Receipt Date: 20140122
  Transmission Date: 20141002
  Serious: Yes (Death, Hospitalization)
  Sender: FDA-Public Use
  Company Number: US-B.I. PHARMACEUTICALS,INC./RIDGEFIELD-2013-BI-26530BP

PATIENT
  Sex: Female
  Weight: 76.2 kg

DRUGS (3)
  1. PRADAXA [Suspect]
     Indication: ATRIAL FIBRILLATION
     Dates: start: 20110402, end: 20110916
  2. METOPROLOL [Concomitant]
  3. ZOCOR [Concomitant]

REACTIONS (1)
  - Haemorrhage intracranial [Fatal]
